FAERS Safety Report 25749625 (Version 2)
Quarter: 2025Q3

REPORT INFORMATION
  Report Type: Spontaneous
  Country: US (occurrence: US)
  Receive Date: 20250902
  Receipt Date: 20250915
  Transmission Date: 20251020
  Serious: Yes (Life-Threatening, Hospitalization)
  Sender: TEVA
  Company Number: US-TEVA-VS-3366407

PATIENT
  Age: 10 Year
  Sex: Female

DRUGS (4)
  1. GEMCITABINE [Suspect]
     Active Substance: GEMCITABINE
     Indication: Ovarian germ cell endodermal sinus tumour
     Route: 065
  2. OXALIPLATIN [Suspect]
     Active Substance: OXALIPLATIN
     Indication: Ovarian germ cell endodermal sinus tumour
     Route: 065
  3. CEFEPIME [Concomitant]
     Active Substance: CEFEPIME HYDROCHLORIDE
     Indication: Antibiotic prophylaxis
     Route: 065
  4. PACLITAXEL [Concomitant]
     Active Substance: PACLITAXEL
     Indication: Ovarian germ cell endodermal sinus tumour
     Route: 065

REACTIONS (3)
  - Pulmonary veno-occlusive disease [Recovering/Resolving]
  - Venoocclusive liver disease [Recovering/Resolving]
  - Acute respiratory distress syndrome [Recovered/Resolved]
